FAERS Safety Report 6198314-0 (Version None)
Quarter: 2009Q2

REPORT INFORMATION
  Report Type: 
  Country: None (occurrence: None)
  Receive Date: 20090519
  Receipt Date: 20090408
  Transmission Date: 20091009
  Serious: Yes (Hospitalization)
  Sender: FDA-Public Use
  Company Number: 263756

PATIENT
  Age: 26 Year
  Sex: Male

DRUGS (6)
  1. CYTARABINE [Suspect]
     Indication: ACUTE MYELOID LEUKAEMIA
     Dosage: 190 MG, INTRAVENOUS
     Route: 042
     Dates: start: 20071219, end: 20071223
  2. (PEGFILGRASTIM) [Suspect]
     Indication: WHITE BLOOD CELL DISORDER
     Dosage: 6 MG, ONCE, SUBCUTANEOUS
     Route: 058
     Dates: start: 20071225, end: 20071225
  3. (ZAVEDOS) [Suspect]
     Indication: ACUTE MYELOID LEUKAEMIA
     Dosage: 18 MG, INTRAVENOUS
     Route: 042
     Dates: start: 20071219, end: 20071221
  4. ETOPOSIDE [Suspect]
     Indication: ACUTE MYELOID LEUKAEMIA
     Dosage: 140 MG, INTRAVENOUS
     Route: 042
     Dates: start: 20071219, end: 20071223
  5. FLUCONAZOLE [Concomitant]
  6. ANTIFUNGAL TREATMENT (ANTIFUNGAL TREATMENT) [Concomitant]

REACTIONS (1)
  - FEBRILE NEUTROPENIA [None]
